FAERS Safety Report 24019053 (Version 4)
Quarter: 2025Q1

REPORT INFORMATION
  Report Type: Spontaneous
  Country: DE (occurrence: DE)
  Receive Date: 20240627
  Receipt Date: 20250103
  Transmission Date: 20250409
  Serious: Yes (Death, Other)
  Sender: LABORATOIRES SERB
  Company Number: DE-SERB S.A.S.-2158604

PATIENT
  Age: 80 Year
  Sex: Female

DRUGS (2)
  1. CYANOKIT [Suspect]
     Active Substance: HYDROXOCOBALAMIN
     Indication: Chemical burn of respiratory tract
     Dates: start: 20240112, end: 20240112
  2. NexoBrid UNK (Concentrate of proteolytic enzymes enriched in bromelain [Concomitant]
     Dates: start: 20240112, end: 20240112

REACTIONS (4)
  - Cardiac arrest [Fatal]
  - Inappropriate schedule of product administration [Unknown]
  - Ventricular fibrillation [Fatal]
  - Lactic acidosis [Fatal]

NARRATIVE: CASE EVENT DATE: 20240113
